FAERS Safety Report 9848110 (Version 1)
Quarter: 2013Q4

REPORT INFORMATION
  Report Type: Spontaneous
  Country: US (occurrence: None)
  Receive Date: 20131223
  Receipt Date: 20131223
  Transmission Date: 20140711
  Serious: No
  Sender: FDA-Public Use
  Company Number: 1000050807

PATIENT
  Age: 79 Year
  Sex: Female

DRUGS (4)
  1. LINZESS (LINACLOTIDE) (CAPSULES) [Suspect]
     Indication: IRRITABLE BOWEL SYNDROME
     Dosage: 145 MCG (145 MCG, 1 IN 1 D), ORAL
     Route: 048
     Dates: start: 201310, end: 20131103
  2. LINZESS (LINACLOTIDE) (CAPSULES) [Suspect]
     Indication: CONSTIPATION
     Dosage: 145 MCG (145 MCG, 1 IN 1 D), ORAL
     Route: 048
     Dates: start: 201310, end: 20131103
  3. ACIPHEX (RABEPRAZOLE SODIUM) (RABEPRAZOLE SODIUM) [Concomitant]
  4. LIPITOR (ATORVASTATIN CALCIUM) (ATORVASTATIN CALCIUM) [Concomitant]

REACTIONS (1)
  - Diarrhoea [None]
